FAERS Safety Report 4856035-8 (Version None)
Quarter: 2005Q4

REPORT INFORMATION
  Report Type: 
  Country: None (occurrence: None)
  Receive Date: 20051216
  Receipt Date: 20051209
  Transmission Date: 20060501
  Serious: Yes (Hospitalization)
  Sender: FDA-Public Use
  Company Number: JP-JNJFOC-20050803674

PATIENT
  Age: 62 Year
  Sex: Male

DRUGS (4)
  1. OFLOCET [Suspect]
     Indication: URINARY TRACT INFECTION
     Route: 048
     Dates: start: 20050415, end: 20050417
  2. TRIAMTERENE AND HYDROCHLOROTHIAZIDE [Concomitant]
     Route: 048
  3. TRIAMTERENE AND HYDROCHLOROTHIAZIDE [Concomitant]
     Indication: ESSENTIAL HYPERTENSION
     Route: 048
  4. PREVISCAN [Concomitant]
     Route: 048

REACTIONS (5)
  - BALANCE DISORDER [None]
  - FALL [None]
  - HYPOAESTHESIA [None]
  - PARAESTHESIA [None]
  - PARESIS [None]
